FAERS Safety Report 8292142-8 (Version None)
Quarter: 2012Q2

REPORT INFORMATION
  Report Type: 
  Country: None (occurrence: None)
  Receive Date: 20120417
  Receipt Date: 20110804
  Transmission Date: 20120825
  Serious: No
  Sender: FDA-Public Use
  Company Number: US-ASTRAZENECA-2011SE47140

PATIENT
  Age: 46 Year
  Sex: Female

DRUGS (5)
  1. SEROQUEL XR [Concomitant]
  2. RANITIDINE [Concomitant]
  3. ZANTAC [Concomitant]
  4. PRILOSEC OTC [Suspect]
     Route: 048
  5. NEXIUM [Suspect]
     Route: 048

REACTIONS (4)
  - GASTROOESOPHAGEAL REFLUX DISEASE [None]
  - DRUG SCREEN FALSE POSITIVE [None]
  - DRUG INTOLERANCE [None]
  - DRUG DOSE OMISSION [None]
